FAERS Safety Report 11881529 (Version 1)
Quarter: 2015Q4

REPORT INFORMATION
  Report Type: Spontaneous
  Country: US (occurrence: US)
  Receive Date: 20151231
  Receipt Date: 20151231
  Transmission Date: 20160305
  Serious: Yes (Other)
  Sender: FDA-Public Use
  Company Number: US-TEVA-622261ACC

PATIENT
  Age: 32 Year
  Sex: Female
  Weight: 70.82 kg

DRUGS (1)
  1. PARAGARD T 380A [Suspect]
     Active Substance: COPPER
     Indication: CONTRACEPTION
     Dates: start: 20141119, end: 20150715

REACTIONS (4)
  - Device dislocation [Recovered/Resolved]
  - Pelvic discomfort [Recovered/Resolved]
  - Coital bleeding [Recovered/Resolved]
  - Embedded device [Recovered/Resolved]

NARRATIVE: CASE EVENT DATE: 20150623
